FAERS Safety Report 5941290-3 (Version None)
Quarter: 2008Q4

REPORT INFORMATION
  Report Type: 
  Country: None (occurrence: None)
  Receive Date: 20081103
  Receipt Date: 20081103
  Transmission Date: 20090506
  Serious: Yes (Other)
  Sender: FDA-Public Use
  Company Number: None

PATIENT
  Age: 23 Year
  Sex: Female
  Weight: 58.9676 kg

DRUGS (1)
  1. CYMBALTA [Suspect]
     Indication: DEPRESSION
     Dosage: 60 ONCE DAILY PO
     Route: 048
     Dates: start: 20080107, end: 20081031

REACTIONS (9)
  - BALANCE DISORDER [None]
  - BLEPHAROSPASM [None]
  - CONVULSION [None]
  - DYSPNOEA [None]
  - FATIGUE [None]
  - PAIN [None]
  - PARAESTHESIA [None]
  - PHOTOSENSITIVITY REACTION [None]
  - STRESS [None]
